FAERS Safety Report 11871137 (Version 2)
Quarter: 2016Q1

REPORT INFORMATION
  Report Type: Spontaneous
  Country: IT (occurrence: IT)
  Receive Date: 20151228
  Receipt Date: 20160226
  Transmission Date: 20160526
  Serious: Yes (Other)
  Sender: FDA-Public Use
  Company Number: IT-KADMON PHARMACEUTICALS, LLC-KAD201512-004435

PATIENT
  Age: 61 Year
  Sex: Male

DRUGS (6)
  1. RIBAVIRIN 400 MG [Suspect]
     Active Substance: RIBAVIRIN
     Indication: CHRONIC HEPATITIS C
     Dosage: COATED TABLET
     Route: 048
     Dates: start: 20150812
  2. LANSOPRAZOLE. [Concomitant]
     Active Substance: LANSOPRAZOLE
     Dosage: TABLET
     Route: 048
  3. ALDACTONE 100 MG COATED TABLET [Concomitant]
     Route: 048
  4. SOVALDI [Suspect]
     Active Substance: SOFOSBUVIR
     Indication: CHRONIC HEPATITIS C
     Route: 048
     Dates: start: 20150812
  5. DAKLINZA [Suspect]
     Active Substance: DACLATASVIR
     Indication: CHRONIC HEPATITIS C
     Route: 048
     Dates: start: 20150812, end: 20151126
  6. FUROSEMIDE. [Concomitant]
     Active Substance: FUROSEMIDE
     Dosage: TABLET
     Route: 048

REACTIONS (5)
  - Somnolence [Unknown]
  - Hepatic encephalopathy [Unknown]
  - Decreased activity [Unknown]
  - Asterixis [Unknown]
  - Constipation [Unknown]

NARRATIVE: CASE EVENT DATE: 20151126
